FAERS Safety Report 10227617 (Version 1)
Quarter: 2014Q2

REPORT INFORMATION
  Report Type: Spontaneous
  Country: FR (occurrence: FR)
  Receive Date: 20140610
  Receipt Date: 20140610
  Transmission Date: 20141212
  Serious: Yes (Other)
  Sender: FDA-Public Use
  Company Number: FR-UCBSA-2014000303

PATIENT
  Age: 30 Year
  Sex: Female

DRUGS (4)
  1. KEPPRA [Suspect]
     Indication: CONVULSION
     Dosage: 250 MG, 2X/DAY (BID)
     Route: 048
     Dates: start: 20140318, end: 20140324
  2. ZOVIRAX [Concomitant]
     Dosage: 600 MG, 3X/DAY (TID)
     Route: 042
     Dates: start: 20140227, end: 20140321
  3. DOLIPRANE [Concomitant]
     Indication: HEADACHE
     Dosage: UNKNOWN
  4. TOPALGIC [Concomitant]
     Indication: HEADACHE
     Dosage: UNKNOWN

REACTIONS (3)
  - Dyspnoea [Recovered/Resolved]
  - Diarrhoea [Recovered/Resolved]
  - Headache [Not Recovered/Not Resolved]
